FAERS Safety Report 5676130-3 (Version None)
Quarter: 2008Q1

REPORT INFORMATION
  Report Type: 
  Country: None (occurrence: None)
  Receive Date: 20080321
  Receipt Date: 20080310
  Transmission Date: 20080703
  Serious: Yes (Hospitalization)
  Sender: FDA-Public Use
  Company Number: HU-WYE-H03195908

PATIENT
  Sex: Male

DRUGS (4)
  1. CORDARONE [Suspect]
     Dates: end: 20070101
  2. SIMVASTATIN [Concomitant]
  3. BETALOC [Concomitant]
  4. SYNCUMAR [Concomitant]

REACTIONS (1)
  - CHOLECYSTITIS ACUTE [None]
